FAERS Safety Report 9437597 (Version 1)
Quarter: 2013Q3

REPORT INFORMATION
  Report Type: Report from Study
  Country: US (occurrence: US)
  Receive Date: 20130802
  Receipt Date: 20130802
  Transmission Date: 20140515
  Serious: Yes (Hospitalization)
  Sender: FDA-Public Use
  Company Number: US-ROCHE-1254543

PATIENT
  Age: 29 Year
  Sex: Male

DRUGS (7)
  1. XOLAIR [Suspect]
     Indication: ASTHMA
     Route: 058
  2. ALBUTEROL [Concomitant]
     Indication: WHEEZING
     Route: 055
  3. ALBUTEROL [Concomitant]
     Indication: COUGH
  4. LORATADINE [Concomitant]
     Route: 065
  5. SINGULAIR [Concomitant]
     Route: 065
  6. ADVAIR [Concomitant]
     Route: 055
  7. PREDNISONE [Concomitant]
     Dosage: FOR 3 DAYS
     Route: 048

REACTIONS (7)
  - Asthma [Unknown]
  - Rhinitis allergic [Unknown]
  - Cough [Unknown]
  - Wheezing [Unknown]
  - Dyspnoea [Unknown]
  - Asthma [Unknown]
  - Bronchitis [Unknown]
